FAERS Safety Report 9508415 (Version 1)
Quarter: 2013Q3

REPORT INFORMATION
  Report Type: Spontaneous
  Country: CA (occurrence: None)
  Receive Date: 20130905
  Receipt Date: 20130905
  Transmission Date: 20140515
  Serious: Yes (Other)
  Sender: FDA-Public Use
  Company Number: DSU-2013-04483

PATIENT
  Age: 48 Year
  Sex: Female
  Weight: 71.22 kg

DRUGS (1)
  1. OLMETEC (OLMESARTAN MEDOXOMIL) (20 MILLIGRAM, TABLET) (OLMESARTAN MEDOXOMIL) [Suspect]
     Indication: HYPERTENSION
     Route: 048
     Dates: start: 20130716, end: 20130814

REACTIONS (2)
  - Pain in jaw [None]
  - Neck pain [None]
